FAERS Safety Report 8031431-9 (Version None)
Quarter: 2011Q4

REPORT INFORMATION
  Report Type: 
  Country: None (occurrence: None)
  Receive Date: 20111202
  Receipt Date: 20101110
  Transmission Date: 20120403
  Serious: Yes (Hospitalization, Other)
  Sender: FDA-Public Use
  Company Number: 2008-188731-NL

PATIENT
  Age: 28 Year
  Sex: Female
  Weight: 77.1115 kg

DRUGS (1)
  1. NUVARING [Suspect]
     Indication: CONTRACEPTION
     Dosage: 1 DF;
     Dates: start: 20050501, end: 20051002

REACTIONS (4)
  - PULMONARY EMBOLISM [None]
  - DEPRESSION [None]
  - THROMBOSIS [None]
  - HEART RATE IRREGULAR [None]
